FAERS Safety Report 8297038-3 (Version None)
Quarter: 2012Q2

REPORT INFORMATION
  Report Type: 
  Country: None (occurrence: None)
  Receive Date: 20120416
  Receipt Date: 20120402
  Transmission Date: 20120825
  Serious: Yes (Hospitalization)
  Sender: FDA-Public Use
  Company Number: FK201200996

PATIENT
  Age: 69 Year
  Sex: Male

DRUGS (2)
  1. DEXAMETHASONE SODIUM PHOSPHATE [Suspect]
     Indication: MULTIPLE MYELOMA
  2. BORTEZOMIB (MANUFACTURER UNKNOWN) (BORTEZOMIB) (BORTEZOMIB) [Suspect]
     Indication: MULTIPLE MYELOMA
     Dosage: ON DAYS: 1, 4, 8, AND 11

REACTIONS (3)
  - INAPPROPRIATE ANTIDIURETIC HORMONE SECRETION [None]
  - NEUROPATHY PERIPHERAL [None]
  - BLOOD POTASSIUM DECREASED [None]
